FAERS Safety Report 7747555-7 (Version None)
Quarter: 2011Q3

REPORT INFORMATION
  Report Type: 
  Country: None (occurrence: None)
  Receive Date: 20110909
  Receipt Date: 20110826
  Transmission Date: 20111222
  Serious: Yes (Other)
  Sender: FDA-Public Use
  Company Number: AUR-APL-2011-04889

PATIENT
  Age: 42 Year
  Sex: Female
  Weight: 82.99 kg

DRUGS (12)
  1. ASPIRIN [Suspect]
     Indication: PRODUCT USED FOR UNKNOWN INDICATION
     Dosage: 325 MG (325 MG, 1 IN 1 D), ORAL
     Route: 048
  2. ZOCOR [Suspect]
     Indication: PRODUCT USED FOR UNKNOWN INDICATION
     Dosage: (40 MG, AT BEDTIME), ORAL
     Route: 048
  3. HYDROCHLOROTHIAZIDE [Suspect]
     Indication: PRODUCT USED FOR UNKNOWN INDICATION
     Dosage: 12.5 MG (12.5 MG, 1 IN 1 D), ORAL
     Route: 048
  4. FISH OIL (FISH OIL) [Suspect]
     Indication: PRODUCT USED FOR UNKNOWN INDICATION
     Dosage: 4000 MG (1000 MG, 4 IN 1 D), ORAL
     Route: 048
  5. CARVEDILOL [Suspect]
     Indication: PRODUCT USED FOR UNKNOWN INDICATION
     Dosage: 12.5 MG (6.25 MG, 2 IN 1 D), ORAL
     Route: 048
  6. AMBIEN [Suspect]
     Indication: PRODUCT USED FOR UNKNOWN INDICATION
     Dosage: 10 MG, AT BEDTIME, ORAL)
     Route: 048
  7. PLAVIX [Suspect]
     Indication: PRODUCT USED FOR UNKNOWN INDICATION
     Dosage: 75 MG ( 75 MG, 1 IN 1 D), ORAL
     Route: 048
  8. KLOR-CON [Suspect]
     Indication: PRODUCT USED FOR UNKNOWN INDICATION
     Dosage: 8.8 MILLIEQUIVALENTS
  9. LISINOPRIL [Suspect]
     Indication: PRODUCT USED FOR UNKNOWN INDICATION
     Dosage: 5 MG (5 MG, 1 IN 1 D), ORAL
     Route: 048
  10. METOPROLOL TARTRATE [Suspect]
     Indication: PRODUCT USED FOR UNKNOWN INDICATION
     Dosage: 50 MG (25 MG, 2 IN 1 D), ORAL
     Route: 048
  11. XANAX [Suspect]
     Dosage: 1 MG (0.5 MG, 2 IN 1 D), ORAL
     Route: 048
  12. LIPITOR [Suspect]
     Indication: PRODUCT USED FOR UNKNOWN INDICATION
     Dosage: 80 MG (80 MG AT BED TIME)

REACTIONS (4)
  - MUSCULOSKELETAL CHEST PAIN [None]
  - BLOOD PRESSURE DECREASED [None]
  - MYOCARDIAL INFARCTION [None]
  - CHEST DISCOMFORT [None]
